FAERS Safety Report 4909528-9 (Version None)
Quarter: 2006Q1

REPORT INFORMATION
  Report Type: 
  Country: None (occurrence: None)
  Receive Date: 20060213
  Receipt Date: 20050908
  Transmission Date: 20060701
  Serious: Yes (Hospitalization, Disabling, Other)
  Sender: FDA-Public Use
  Company Number: US-MERCK-0509USA01187

PATIENT
  Age: 72 Year
  Sex: Female
  Weight: 76 kg

DRUGS (12)
  1. VIOXX [Suspect]
     Indication: ARTHRITIS
     Route: 048
     Dates: start: 19990101, end: 20001207
  2. TYLENOL (CAPLET) [Suspect]
     Route: 065
  3. LASIX [Suspect]
     Route: 048
  4. POTASSIUM (UNSPECIFIED) [Suspect]
     Route: 048
  5. ZOCOR [Suspect]
     Route: 048
  6. PRINIVIL [Suspect]
     Route: 048
  7. DARVOCET-N 50 [Suspect]
     Route: 065
  8. TOPROL-XL [Suspect]
     Route: 048
  9. VITAMINS (UNSPECIFIED) [Suspect]
     Route: 065
  10. CALCIUM (UNSPECIFIED) [Suspect]
     Route: 065
  11. METAMUCIL [Suspect]
     Route: 065
  12. GARLIC [Suspect]
     Route: 065

REACTIONS (15)
  - BACTERIAL INFECTION [None]
  - CARDIAC DISORDER [None]
  - CARDIAC FAILURE CONGESTIVE [None]
  - CATARACT [None]
  - CONSTIPATION [None]
  - CORONARY ARTERY OCCLUSION [None]
  - DYSPNOEA EXERTIONAL [None]
  - HAEMATOCHEZIA [None]
  - MICTURITION URGENCY [None]
  - MYOCARDIAL INFARCTION [None]
  - PLEURAL EFFUSION [None]
  - RENAL FAILURE ACUTE [None]
  - RESPIRATORY DISORDER [None]
  - ROAD TRAFFIC ACCIDENT [None]
  - ULCER HAEMORRHAGE [None]
